FAERS Safety Report 25227801 (Version 1)
Quarter: 2025Q2

REPORT INFORMATION
  Report Type: Spontaneous
  Country: US (occurrence: US)
  Receive Date: 20250423
  Receipt Date: 20250423
  Transmission Date: 20250716
  Serious: No
  Sender: ELI LILLY AND COMPANY
  Company Number: US-ELI_LILLY_AND_COMPANY-US202504017188

PATIENT
  Age: 56 Year
  Sex: Male

DRUGS (3)
  1. TALTZ [Suspect]
     Active Substance: IXEKIZUMAB
     Indication: Product used for unknown indication
     Route: 065
     Dates: start: 202007, end: 202412
  2. CORTISONE [Concomitant]
     Active Substance: CORTISONE
     Indication: Product used for unknown indication
  3. METHOTREXATE [Concomitant]
     Active Substance: METHOTREXATE
     Indication: Product used for unknown indication

REACTIONS (11)
  - Stress [Unknown]
  - Gait inability [Unknown]
  - Psoriasis [Unknown]
  - Skin burning sensation [Unknown]
  - Anxiety [Unknown]
  - Sensitive skin [Unknown]
  - Arthritis [Unknown]
  - Ligament rupture [Unknown]
  - Muscular weakness [Unknown]
  - Meniscus injury [Unknown]
  - Osteoarthritis [Unknown]

NARRATIVE: CASE EVENT DATE: 20230701
